FAERS Safety Report 13137290 (Version 1)
Quarter: 2017Q1

REPORT INFORMATION
  Report Type: Spontaneous
  Country: US (occurrence: US)
  Receive Date: 20170120
  Receipt Date: 20170120
  Transmission Date: 20170428
  Serious: No
  Sender: FDA-Public Use
  Company Number: None

PATIENT
  Age: 51 Year
  Sex: Female

DRUGS (1)
  1. SENSIPAR [Suspect]
     Active Substance: CINACALCET HYDROCHLORIDE
     Route: 048
     Dates: start: 20161227, end: 20170116

REACTIONS (6)
  - Pain [None]
  - Vomiting [None]
  - Gait disturbance [None]
  - Muscle spasms [None]
  - Trismus [None]
  - Ill-defined disorder [None]

NARRATIVE: CASE EVENT DATE: 20161227
